FAERS Safety Report 6078525-5 (Version None)
Quarter: 2009Q1

REPORT INFORMATION
  Report Type: 
  Country: None (occurrence: None)
  Receive Date: 20090211
  Receipt Date: 20090211
  Transmission Date: 20090719
  Serious: No
  Sender: FDA-Public Use
  Company Number: None

PATIENT
  Age: 57 Year
  Sex: Female
  Weight: 86.1834 kg

DRUGS (1)
  1. METOPROLOL SUCCINATE EXTENDED RELEASE [Suspect]
     Indication: VENTRICULAR EXTRASYSTOLES
     Dosage: 25 MG EVERY EVENING PO
     Route: 048
     Dates: start: 20000101, end: 20090101

REACTIONS (4)
  - CONDITION AGGRAVATED [None]
  - ORTHOSTATIC HYPOTENSION [None]
  - PRODUCT QUALITY ISSUE [None]
  - VENTRICULAR EXTRASYSTOLES [None]
